FAERS Safety Report 4344713-9 (Version None)
Quarter: 2004Q2

REPORT INFORMATION
  Report Type: 
  Country: None (occurrence: None)
  Receive Date: 20040420
  Receipt Date: 20040407
  Transmission Date: 20050107
  Serious: Yes (Death)
  Sender: FDA-Public Use
  Company Number: 2003172205IT

PATIENT
  Age: 29 Year
  Sex: Female

DRUGS (2)
  1. XANAX [Suspect]
     Indication: DEPRESSION
     Dosage: ORAL
     Route: 048
     Dates: start: 20030727
  2. PAROXETINE HCL [Suspect]
     Dosage: 20 MG/DAY, ORAL
     Route: 048
     Dates: start: 20030101, end: 20030801

REACTIONS (3)
  - CARDIAC ARREST [None]
  - SUDDEN DEATH [None]
  - VENTRICULAR FIBRILLATION [None]
